FAERS Safety Report 5306490-4 (Version None)
Quarter: 2007Q2

REPORT INFORMATION
  Report Type: 
  Country: None (occurrence: None)
  Receive Date: 20070424
  Receipt Date: 20070416
  Transmission Date: 20071010
  Serious: Yes (Hospitalization)
  Sender: FDA-Public Use
  Company Number: US-AMGEN-STX218688

PATIENT
  Sex: Male

DRUGS (1)
  1. ENBREL [Suspect]
     Indication: ANKYLOSING SPONDYLITIS
     Route: 058
     Dates: start: 20060626

REACTIONS (9)
  - ANKYLOSING SPONDYLITIS [None]
  - BIPOLAR DISORDER [None]
  - CHEST PAIN [None]
  - COLONOSCOPY [None]
  - DIARRHOEA [None]
  - HEPATIC ENZYME INCREASED [None]
  - INFLUENZA [None]
  - RHEUMATOID ARTHRITIS [None]
  - SUICIDAL BEHAVIOUR [None]
